FAERS Safety Report 11659735 (Version 4)
Quarter: 2015Q4

REPORT INFORMATION
  Report Type: Report from Study
  Country: IT (occurrence: IT)
  Receive Date: 20151026
  Receipt Date: 20151106
  Transmission Date: 20160304
  Serious: Yes (Other)
  Sender: FDA-Public Use
  Company Number: IT-TEVA-602095ACC

PATIENT
  Age: 68 Year
  Sex: Female

DRUGS (4)
  1. FOLINIC ACID [Suspect]
     Active Substance: LEUCOVORIN
     Indication: COLON CANCER METASTATIC
     Dosage: 280 MG CYCLICAL
     Route: 041
     Dates: start: 20150909, end: 20150909
  2. FLUOROURACIL. [Suspect]
     Active Substance: FLUOROURACIL
     Indication: COLON CANCER METASTATIC
     Dosage: 4160 MG CYCLICAL
     Route: 042
     Dates: start: 20150909, end: 20150909
  3. IRINOTECAN [Suspect]
     Active Substance: IRINOTECAN
     Indication: COLON CANCER METASTATIC
     Dosage: 250 MG CYCLICAL
     Route: 041
     Dates: start: 20150909, end: 20150909
  4. ZALTRAP [Suspect]
     Active Substance: ZIV-AFLIBERCEPT
     Indication: COLON CANCER METASTATIC
     Dosage: 220 MG CYCLICAL
     Route: 041
     Dates: start: 20150909, end: 20150909

REACTIONS (2)
  - Hypertensive crisis [Recovered/Resolved]
  - Proteinuria [Unknown]

NARRATIVE: CASE EVENT DATE: 20150918
